FAERS Safety Report 9240650 (Version 1)
Quarter: 2013Q2

REPORT INFORMATION
  Report Type: Spontaneous
  Country: US (occurrence: US)
  Receive Date: 20130418
  Receipt Date: 20130418
  Transmission Date: 20140414
  Serious: Yes (Other)
  Sender: FDA-Public Use
  Company Number: US-SANOFI-AVENTIS-2012SA080682

PATIENT
  Age: 57 Year
  Sex: Female
  Weight: 74 kg

DRUGS (4)
  1. LOVENOX [Suspect]
     Indication: PROPHYLAXIS
     Route: 065
     Dates: start: 20121018, end: 20121020
  2. VICODIN [Concomitant]
     Indication: PAIN
     Dates: start: 201209
  3. ZOCOR [Concomitant]
     Indication: BLOOD CHOLESTEROL INCREASED
     Dates: start: 2002
  4. ANCEF [Concomitant]
     Route: 042
     Dates: start: 20121017, end: 20121018

REACTIONS (4)
  - Hypersensitivity [Recovered/Resolved]
  - Urticaria [Recovered/Resolved]
  - Pruritus [Recovered/Resolved]
  - Throat tightness [Recovered/Resolved]
